FAERS Safety Report 7997173-0 (Version None)
Quarter: 2011Q4

REPORT INFORMATION
  Report Type: 
  Country: None (occurrence: None)
  Receive Date: 20111221
  Receipt Date: 20111212
  Transmission Date: 20120403
  Serious: Yes (Hospitalization)
  Sender: FDA-Public Use
  Company Number: US-JNJFOC-20111205457

PATIENT
  Sex: Male

DRUGS (7)
  1. RISPERIDONE [Suspect]
     Indication: PRODUCT USED FOR UNKNOWN INDICATION
     Route: 048
     Dates: start: 20110901
  2. PROPRANOLOL [Concomitant]
     Indication: AKATHISIA
     Route: 048
     Dates: start: 20111101
  3. INVEGA SUSTENNA [Suspect]
     Indication: PRODUCT USED FOR UNKNOWN INDICATION
     Route: 030
     Dates: start: 20111205
  4. RISPERDAL CONSTA [Suspect]
     Indication: PRODUCT USED FOR UNKNOWN INDICATION
     Route: 030
     Dates: start: 20111001, end: 20111119
  5. PRAVASTATIN [Concomitant]
     Route: 048
  6. VALPROIC ACID [Concomitant]
     Dosage: 250BID 12-8
     Route: 048
     Dates: start: 20111208, end: 20111212
  7. LORAZEPAM [Concomitant]
     Route: 048

REACTIONS (1)
  - AKATHISIA [None]
